FAERS Safety Report 22045788 (Version 1)
Quarter: 2023Q1

REPORT INFORMATION
  Report Type: Spontaneous
  Country: JP (occurrence: None)
  Receive Date: 20230228
  Receipt Date: 20230228
  Transmission Date: 20230418
  Serious: Yes (Life-Threatening, Disabling, Other)
  Sender: FDA-Public Use
  Company Number: 2022A395242

PATIENT
  Age: 68 Year
  Sex: Male
  Weight: 52 kg

DRUGS (12)
  1. IMFINZI [Suspect]
     Active Substance: DURVALUMAB
     Indication: Small cell lung cancer
     Route: 041
     Dates: start: 20220927, end: 20221025
  2. CARBOPLATIN [Concomitant]
     Active Substance: CARBOPLATIN
     Indication: Small cell lung cancer
     Dosage: DOSE UNKNOWN
     Route: 065
     Dates: start: 20220927
  3. ETOPOSIDE [Concomitant]
     Active Substance: ETOPOSIDE
     Indication: Small cell lung cancer
     Dosage: ON DAY 1, 2 AND 3 OF EACH CYCLE, DOSE UNKNOWN
     Route: 065
     Dates: start: 20220927
  4. PALONOSETRON [Concomitant]
     Active Substance: PALONOSETRON
     Dosage: DOSE UNKNOWN
     Route: 042
  5. DEXAMETHASONE SODIUM PHOSPHATE [Concomitant]
     Active Substance: DEXAMETHASONE SODIUM PHOSPHATE
     Dosage: DOSE UNKNOWN
     Route: 065
  6. FOSAPREPITANT [Concomitant]
     Active Substance: FOSAPREPITANT
     Dosage: DOSE UNKNOWN
     Route: 041
  7. ABILIFY [Concomitant]
     Active Substance: ARIPIPRAZOLE
     Dosage: DOSE UNKNOWN
     Route: 048
  8. CANDESARTAN [Concomitant]
     Active Substance: CANDESARTAN
     Dosage: DOSE UNKNOWN
     Route: 065
  9. LANSOPRAZOLE [Concomitant]
     Active Substance: LANSOPRAZOLE
     Dosage: DOSE UNKNOWN
     Route: 048
  10. LATUDA [Concomitant]
     Active Substance: LURASIDONE HYDROCHLORIDE
     Dosage: DOSE UNKNOWN
     Route: 048
  11. BELSOMRA [Concomitant]
     Active Substance: SUVOREXANT
     Dosage: DOSE UNKNOWN
     Route: 048
  12. AMLODIPINE [Concomitant]
     Active Substance: AMLODIPINE BESYLATE
     Dosage: DOSE UNKNOWN
     Route: 048

REACTIONS (1)
  - Neuropathy peripheral [Not Recovered/Not Resolved]

NARRATIVE: CASE EVENT DATE: 20221115
